FAERS Safety Report 9054507 (Version 1)
Quarter: 2013Q1

REPORT INFORMATION
  Report Type: Spontaneous
  Country: US (occurrence: US)
  Receive Date: 20130208
  Receipt Date: 20130208
  Transmission Date: 20140127
  Serious: No
  Sender: FDA-Public Use
  Company Number: US-GLAXOSMITHKLINE-A0998441A

PATIENT
  Age: 57 Year
  Sex: Female

DRUGS (3)
  1. PAXIL [Suspect]
     Indication: DEPRESSION
     Dosage: 5MG ALTERNATE DAYS
     Dates: start: 1995
  2. ESCITALOPRAM [Suspect]
     Indication: DEPRESSION
     Dosage: 5MG PER DAY
     Dates: start: 20120423, end: 201205
  3. XANAX [Concomitant]

REACTIONS (1)
  - Anxiety [Not Recovered/Not Resolved]
